FAERS Safety Report 22264984 (Version 2)
Quarter: 2023Q2

REPORT INFORMATION
  Report Type: Report from Study
  Country: BR (occurrence: BR)
  Receive Date: 20230428
  Receipt Date: 20230530
  Transmission Date: 20230722
  Serious: Yes (Hospitalization, Other)
  Sender: FDA-Public Use
  Company Number: BR-JNJFOC-20230453815

PATIENT
  Age: 16 Year
  Sex: Male

DRUGS (10)
  1. INFLIXIMAB [Suspect]
     Active Substance: INFLIXIMAB
     Indication: Crohn^s disease
     Dosage: 300 DOSAGE FORM
     Route: 041
     Dates: start: 20221028
  2. AZATHIOPRINE [Concomitant]
     Active Substance: AZATHIOPRINE
  3. VONAL [Concomitant]
  4. DIMETHICONE\METOCLOPRAMIDE\PEPSIN [Concomitant]
     Active Substance: DIMETHICONE\METOCLOPRAMIDE\PEPSIN
  5. SUPRACILLIN [Concomitant]
  6. ACETAMINOPHEN [Concomitant]
     Active Substance: ACETAMINOPHEN
  7. TRAMADOL [Concomitant]
     Active Substance: TRAMADOL
  8. ESOMEPRAZOLE [Concomitant]
     Active Substance: ESOMEPRAZOLE
  9. DIMETHICONE [Concomitant]
     Active Substance: DIMETHICONE
  10. PREDNISOLONE [Concomitant]
     Active Substance: PREDNISOLONE

REACTIONS (7)
  - Hospitalisation [Unknown]
  - Crohn^s disease [Unknown]
  - Impaired quality of life [Unknown]
  - Haemorrhoids [Unknown]
  - Myalgia [Unknown]
  - Drug ineffective [Unknown]
  - Rash [Unknown]

NARRATIVE: CASE EVENT DATE: 20221201
